FAERS Safety Report 13131476 (Version 3)
Quarter: 2017Q3

REPORT INFORMATION
  Report Type: Spontaneous
  Country: US (occurrence: US)
  Receive Date: 20170119
  Receipt Date: 20170821
  Transmission Date: 20171127
  Serious: Yes (Other)
  Sender: FDA-Public Use
  Company Number: US-PFIZER INC-2017023631

PATIENT
  Age: 56 Year
  Sex: Female
  Weight: 68 kg

DRUGS (4)
  1. TOVIAZ [Suspect]
     Active Substance: FESOTERODINE FUMARATE
     Indication: POLLAKIURIA
     Dosage: 8 MG, 1X/DAY
     Route: 048
     Dates: start: 20161229, end: 20170112
  2. LISINOPRIL. [Concomitant]
     Active Substance: LISINOPRIL
     Indication: BLOOD PRESSURE ABNORMAL
     Dosage: 40 MG, 1X/DAY
  3. TOVIAZ [Suspect]
     Active Substance: FESOTERODINE FUMARATE
     Indication: MICTURITION URGENCY
     Dosage: 4 MG, 1X/DAY
     Route: 048
     Dates: start: 20161214, end: 20161229
  4. TOVIAZ [Suspect]
     Active Substance: FESOTERODINE FUMARATE
     Indication: HYPERTENSION
     Dosage: 1 DF, DAILY
     Route: 048
     Dates: start: 20161214, end: 20170101

REACTIONS (6)
  - Blood pressure fluctuation [Recovering/Resolving]
  - Blood pressure increased [Recovered/Resolved]
  - Drug ineffective [Unknown]
  - Glomerular filtration rate decreased [Unknown]
  - Drug effect delayed [Unknown]
  - Anxiety [Unknown]

NARRATIVE: CASE EVENT DATE: 201612
